FAERS Safety Report 16849985 (Version 2)
Quarter: 2020Q2

REPORT INFORMATION
  Report Type: Spontaneous
  Country: US (occurrence: US)
  Receive Date: 20190925
  Receipt Date: 20200526
  Transmission Date: 20200713
  Serious: Yes (Hospitalization, Other)
  Sender: FDA-Public Use
  Company Number: US-ASTRAZENECA-2019SF34421

PATIENT
  Age: 20353 Day
  Sex: Female
  Weight: 111.2 kg

DRUGS (28)
  1. NORVASC [Concomitant]
     Active Substance: AMLODIPINE BESYLATE
  2. PROAIR HFA [Concomitant]
     Active Substance: ALBUTEROL SULFATE
  3. FARXIGA [Suspect]
     Active Substance: DAPAGLIFLOZIN PROPANEDIOL
     Indication: WEIGHT DECREASED
     Route: 048
     Dates: start: 201803, end: 201807
  4. ROXICODONE [Concomitant]
     Active Substance: OXYCODONE HYDROCHLORIDE
  5. SIMETHICONE (DIMETHICONE) [Concomitant]
     Active Substance: DIMETHICONE
  6. TYLENOL [Concomitant]
     Active Substance: ACETAMINOPHEN
  7. FLAGYL [Concomitant]
     Active Substance: METRONIDAZOLE\METRONIDAZOLE HYDROCHLORIDE
  8. GLUCOTROL [Concomitant]
     Active Substance: GLIPIZIDE
  9. PEPCID [Concomitant]
     Active Substance: FAMOTIDINE
  10. ATIVAN [Concomitant]
     Active Substance: LORAZEPAM
  11. MICATIN [Concomitant]
     Active Substance: MICONAZOLE NITRATE
  12. ZOFRAN [Concomitant]
     Active Substance: ONDANSETRON HYDROCHLORIDE
  13. GLUCOPHAGE [Concomitant]
     Active Substance: METFORMIN HYDROCHLORIDE
  14. UNASYN [Concomitant]
     Active Substance: AMPICILLIN SODIUM\SULBACTAM SODIUM
  15. LIPITOR [Concomitant]
     Active Substance: ATORVASTATIN CALCIUM
  16. LANTUS [Concomitant]
     Active Substance: INSULIN GLARGINE
  17. GLUCAGEN [Concomitant]
     Active Substance: GLUCAGON HYDROCHLORIDE
  18. FARXIGA [Suspect]
     Active Substance: DAPAGLIFLOZIN PROPANEDIOL
     Indication: BLOOD PRESSURE DECREASED
     Route: 048
     Dates: start: 201803, end: 201807
  19. VIBRA [Concomitant]
  20. NITROSTAT [Concomitant]
     Active Substance: NITROGLYCERIN
  21. ALLBEE WITH C [Concomitant]
  22. MAXIPIME [Concomitant]
     Active Substance: CEFEPIME HYDROCHLORIDE
  23. HEPARIN [Concomitant]
     Active Substance: HEPARIN SODIUM
  24. MAG-OX [Concomitant]
     Active Substance: MAGNESIUM OXIDE
  25. FARXIGA [Suspect]
     Active Substance: DAPAGLIFLOZIN PROPANEDIOL
     Indication: TYPE 2 DIABETES MELLITUS
     Route: 048
     Dates: start: 201803, end: 201807
  26. KEPPRA [Concomitant]
     Active Substance: LEVETIRACETAM
  27. PROTONIX [Concomitant]
     Active Substance: PANTOPRAZOLE SODIUM
  28. IMODIUM [Concomitant]
     Active Substance: LOPERAMIDE HYDROCHLORIDE

REACTIONS (7)
  - Abscess limb [Unknown]
  - Sepsis [Unknown]
  - Necrotising fasciitis [Unknown]
  - Acute kidney injury [Unknown]
  - Renal failure [Unknown]
  - Rectal abscess [Unknown]
  - Perirectal abscess [Unknown]

NARRATIVE: CASE EVENT DATE: 20180707
